FAERS Safety Report 5110781-X (Version None)
Quarter: 2006Q3

REPORT INFORMATION
  Report Type: 
  Country: None (occurrence: None)
  Receive Date: 20060919
  Receipt Date: 20060901
  Transmission Date: 20061208
  Serious: Yes (Hospitalization)
  Sender: FDA-Public Use
  Company Number: AE2006-0672

PATIENT
  Sex: Female

DRUGS (1)
  1. MUCINEX D [Suspect]
     Indication: PHARYNGOLARYNGEAL PAIN
     Dosage: ORAL
     Route: 048
     Dates: start: 20060801, end: 20060801

REACTIONS (2)
  - CHEST DISCOMFORT [None]
  - DYSPNOEA [None]
